FAERS Safety Report 10143465 (Version 1)
Quarter: 2014Q2

REPORT INFORMATION
  Report Type: Spontaneous
  Country: US (occurrence: None)
  Receive Date: 20140429
  Receipt Date: 20140429
  Transmission Date: 20141212
  Serious: Yes (Hospitalization)
  Sender: FDA-Public Use
  Company Number: None

PATIENT
  Age: 12 Year
  Sex: Female
  Weight: 42.2 kg

DRUGS (1)
  1. PEG-L-ASPARAGINASE (PEGASPARGASE, ONCOSPAR) [Suspect]
     Dates: start: 20140422

REACTIONS (8)
  - Pruritus [None]
  - Infusion related reaction [None]
  - Throat irritation [None]
  - Vomiting [None]
  - Blood pressure immeasurable [None]
  - Hypotonia [None]
  - Foaming at mouth [None]
  - Oxygen saturation decreased [None]
